FAERS Safety Report 5144921-3 (Version None)
Quarter: 2006Q4

REPORT INFORMATION
  Report Type: 
  Country: None (occurrence: None)
  Receive Date: 20061107
  Receipt Date: 20061026
  Transmission Date: 20070319
  Serious: Yes (Other)
  Sender: FDA-Public Use
  Company Number: PHEH2006US13404

PATIENT
  Age: 57 Year
  Sex: Female

DRUGS (3)
  1. ZOMETA [Suspect]
     Indication: BREAST CANCER METASTATIC
     Dosage: UNK QMO
     Route: 042
     Dates: start: 20030101, end: 20061001
  2. OXYCONTIN [Concomitant]
  3. PROTONIX [Concomitant]

REACTIONS (6)
  - FISTULA [None]
  - GINGIVAL INFECTION [None]
  - INCISIONAL DRAINAGE [None]
  - OSTEONECROSIS [None]
  - PAIN IN JAW [None]
  - SWELLING [None]
